FAERS Safety Report 5967226-7 (Version None)
Quarter: 2008Q4

REPORT INFORMATION
  Report Type: 
  Country: None (occurrence: None)
  Receive Date: 20081125
  Receipt Date: 20081015
  Transmission Date: 20090506
  Serious: No
  Sender: FDA-Public Use
  Company Number: US-AMGEN-KDL312857

PATIENT
  Sex: Female
  Weight: 61.3 kg

DRUGS (1)
  1. ENBREL [Suspect]
     Indication: RHEUMATOID ARTHRITIS
     Route: 058
     Dates: start: 20070622

REACTIONS (4)
  - DRUG INEFFECTIVE [None]
  - TEETH BRITTLE [None]
  - TOOTH DISCOLOURATION [None]
  - TOOTH FRACTURE [None]
